FAERS Safety Report 6875900-3 (Version None)
Quarter: 2010Q3

REPORT INFORMATION
  Report Type: 
  Country: None (occurrence: None)
  Receive Date: 20100727
  Receipt Date: 20100715
  Transmission Date: 20110219
  Serious: Yes (Other)
  Sender: FDA-Public Use
  Company Number: US-ASTRAZENECA-2010SE33010

PATIENT
  Age: 40 Year
  Sex: Female
  Weight: 72.6 kg

DRUGS (2)
  1. SEROQUEL [Suspect]
     Indication: BIPOLAR DISORDER
     Route: 048
     Dates: start: 20070101
  2. TEGRETOL [Concomitant]

REACTIONS (2)
  - BLOOD PRESSURE INCREASED [None]
  - PHAEOCHROMOCYTOMA [None]
